FAERS Safety Report 9651070 (Version 1)
Quarter: 2013Q4

REPORT INFORMATION
  Report Type: Spontaneous
  Country: US (occurrence: US)
  Receive Date: 20131029
  Receipt Date: 20131029
  Transmission Date: 20140711
  Serious: No
  Sender: FDA-Public Use
  Company Number: US-PFIZER INC-2013307453

PATIENT
  Age: 60 Year
  Sex: Female

DRUGS (3)
  1. NEURONTIN [Suspect]
     Dosage: 300 MG ONCE AT BEDTIME FOR 3 DAYS
     Route: 048
  2. NEURONTIN [Suspect]
     Dosage: 300 MG  TWICE DAILY (IN MORNING AND AT BEDTIME) FOR 3 DAYS
     Route: 048
  3. NEURONTIN [Suspect]
     Dosage: 300 MG, 3X/DAY
     Route: 048

REACTIONS (3)
  - Abdominal discomfort [Unknown]
  - Nausea [Unknown]
  - Drug intolerance [Unknown]
